FAERS Safety Report 15691391 (Version 4)
Quarter: 2021Q1

REPORT INFORMATION
  Report Type: Spontaneous
  Country: US (occurrence: US)
  Receive Date: 20181205
  Receipt Date: 20210216
  Transmission Date: 20210419
  Serious: Yes (Other)
  Sender: FDA-Public Use
  Company Number: PHEH2018US051002

PATIENT
  Sex: Female

DRUGS (1)
  1. TASIGNA [Suspect]
     Active Substance: NILOTINIB
     Indication: CHRONIC MYELOID LEUKAEMIA
     Dosage: 400 MG, BID
     Route: 048
     Dates: start: 20150914, end: 201808

REACTIONS (23)
  - Carotid artery stenosis [Unknown]
  - Back pain [Unknown]
  - Abdominal distension [Unknown]
  - Arteriosclerosis [Unknown]
  - Paraesthesia [Unknown]
  - Injury [Unknown]
  - Diarrhoea [Unknown]
  - Constipation [Unknown]
  - Neuropathy peripheral [Unknown]
  - Hypoaesthesia [Unknown]
  - Dyslipidaemia [Unknown]
  - Oedema [Unknown]
  - Carotid bruit [Unknown]
  - Muscle spasms [Unknown]
  - Anxiety [Unknown]
  - Burning sensation [Unknown]
  - Emotional distress [Unknown]
  - Lymphadenitis [Unknown]
  - Abdominal discomfort [Unknown]
  - Peripheral artery occlusion [Unknown]
  - Peripheral vascular disorder [Unknown]
  - Depression [Unknown]
  - Pain [Unknown]
